FAERS Safety Report 7821886-4 (Version None)
Quarter: 2011Q4

REPORT INFORMATION
  Report Type: 
  Country: None (occurrence: None)
  Receive Date: 20111018
  Receipt Date: 20110516
  Transmission Date: 20120403
  Serious: No
  Sender: FDA-Public Use
  Company Number: US-ASTRAZENECA-2011SE29628

PATIENT
  Age: 68 Year
  Sex: Female
  Weight: 90.7 kg

DRUGS (19)
  1. VITAMIN D [Concomitant]
  2. RAISENS SATURATED WITH GIN [Concomitant]
  3. BLOOD PRESSURE MEDICATION [Concomitant]
     Indication: HYPERTENSION
  4. DOXYCYCLINE [Concomitant]
     Indication: GENITOURINARY TRACT INFECTION
  5. LIDOCAINE [Concomitant]
  6. SINGULAIR [Concomitant]
     Indication: ASTHMA
  7. DOXYCYCLINE [Concomitant]
     Indication: LOCALISED INFECTION
  8. FLONASE [Concomitant]
     Indication: HYPERSENSITIVITY
  9. LASIX [Concomitant]
     Indication: FLUID RETENTION
  10. CODEINE SULFATE [Concomitant]
     Indication: BACK PAIN
  11. GINKOBALOBA [Concomitant]
     Indication: ANTICOAGULANT THERAPY
  12. MUCINEX [Concomitant]
  13. SYMBICORT [Suspect]
     Indication: ASTHMA
     Dosage: 160/4.5 MCG BID
     Route: 055
  14. TIZNIDINE [Concomitant]
  15. DARVON [Concomitant]
  16. ALLEGRA [Concomitant]
     Indication: ASTHMA
  17. PROAIR HFA [Concomitant]
     Indication: ASTHMA
  18. SYNTHROID [Concomitant]
     Indication: THYROID THERAPY
  19. DIAZEPAM [Concomitant]
     Indication: IRRITABLE BOWEL SYNDROME

REACTIONS (7)
  - DIABETES MELLITUS [None]
  - ULCER [None]
  - BONE DENSITY ABNORMAL [None]
  - BACK DISORDER [None]
  - FIBROMYALGIA [None]
  - FALL [None]
  - ROTATOR CUFF SYNDROME [None]
